FAERS Safety Report 12640317 (Version 2)
Quarter: 2017Q3

REPORT INFORMATION
  Report Type: Spontaneous
  Country: DE (occurrence: DE)
  Receive Date: 20160810
  Receipt Date: 20170914
  Transmission Date: 20171127
  Serious: Yes (Other)
  Sender: FDA-Public Use
  Company Number: DE-DRREDDYS-GER/GER/16/0081986

PATIENT
  Age: 29 Year
  Sex: Female
  Weight: 55 kg

DRUGS (2)
  1. CIPROFLOXACIN. [Suspect]
     Active Substance: CIPROFLOXACIN
     Indication: URINARY TRACT INFECTION
     Route: 048
     Dates: start: 20160509, end: 20160519
  2. CIPROFLOXACIN. [Suspect]
     Active Substance: CIPROFLOXACIN
     Indication: PYELONEPHRITIS

REACTIONS (11)
  - Weight bearing difficulty [Not Recovered/Not Resolved]
  - Memory impairment [Recovering/Resolving]
  - Depressed level of consciousness [Recovering/Resolving]
  - Language disorder [Recovered/Resolved]
  - Disturbance in attention [Not Recovered/Not Resolved]
  - Irritable bowel syndrome [Not Recovered/Not Resolved]
  - Cognitive disorder [Recovering/Resolving]
  - Aphasia [Not Recovered/Not Resolved]
  - Thinking abnormal [Recovering/Resolving]
  - Alopecia [Not Recovered/Not Resolved]
  - Muscle contractions involuntary [Not Recovered/Not Resolved]

NARRATIVE: CASE EVENT DATE: 20160509
